FAERS Safety Report 16715921 (Version 1)
Quarter: 2019Q3

REPORT INFORMATION
  Report Type: Spontaneous
  Country: JP (occurrence: JP)
  Receive Date: 20190819
  Receipt Date: 20190819
  Transmission Date: 20191005
  Serious: Yes (Hospitalization, Other)
  Sender: FDA-Public Use
  Company Number: JP-SUNOVION-2019SUN002131

PATIENT
  Age: 86 Year
  Sex: Female

DRUGS (9)
  1. LIXIANA OD [Concomitant]
     Active Substance: EDOXABAN TOSYLATE
     Dosage: AFTER BREAKFAST
     Route: 048
  2. PREDONINE [Concomitant]
     Active Substance: PREDNISOLONE
     Dosage: AFTER BREAKFAST
     Route: 048
  3. RABEPRAZOLE NA [Concomitant]
     Active Substance: RABEPRAZOLE SODIUM
     Dosage: AFTER BREAKFAST
     Route: 048
  4. BETANIS [Concomitant]
     Active Substance: MIRABEGRON
     Dosage: AFTER SUPPER
     Route: 048
  5. MICAMLO [Concomitant]
     Active Substance: AMLODIPINE BESYLATE\TELMISARTAN
     Dosage: AFTER BREAKFAST
     Route: 048
  6. DEPAS [Concomitant]
     Dosage: 1 MG ON AN AS-NEEDED BASIS AT THE TIME OF INSOMNIA
     Route: 065
  7. BROTIZOLAM [Concomitant]
     Active Substance: BROTIZOLAM
     Dosage: AT BEDTIME
     Route: 048
  8. LUNESTA [Suspect]
     Active Substance: ESZOPICLONE
     Indication: INSOMNIA
     Dosage: 2 MG, QD
     Route: 048
     Dates: start: 201805, end: 20190416
  9. BONALON [Concomitant]
     Active Substance: ALENDRONATE SODIUM
     Dosage: RIGHT AFTER WAKING UP
     Route: 048

REACTIONS (2)
  - Somnambulism [Recovered/Resolved]
  - Pulmonary thrombosis [Unknown]

NARRATIVE: CASE EVENT DATE: 20190318
